FAERS Safety Report 25057486 (Version 1)
Quarter: 2025Q1

REPORT INFORMATION
  Report Type: Spontaneous
  Country: CN (occurrence: CN)
  Receive Date: 20250310
  Receipt Date: 20250310
  Transmission Date: 20250408
  Serious: Yes (Death, Hospitalization)
  Sender: LAURUS LABS LIMITED
  Company Number: CN-LAURUS LABS LIMITED-2025LAU000010

PATIENT
  Age: 72 Year
  Sex: Female

DRUGS (1)
  1. LOPINAVIR AND RITONAVIR [Suspect]
     Active Substance: LOPINAVIR\RITONAVIR
     Indication: COVID-19
     Route: 065
     Dates: start: 202306, end: 20230731

REACTIONS (3)
  - Drug-induced liver injury [Fatal]
  - Cholestasis [Fatal]
  - Product use in unapproved indication [Unknown]
